FAERS Safety Report 16410203 (Version 1)
Quarter: 2019Q2

REPORT INFORMATION
  Report Type: Spontaneous
  Country: NL (occurrence: NL)
  Receive Date: 20190610
  Receipt Date: 20190610
  Transmission Date: 20190711
  Serious: Yes (Hospitalization)
  Sender: FDA-Public Use
  Company Number: NL-MYLANLABS-2019M1053492

PATIENT
  Age: 77 Year
  Sex: Male
  Weight: 100 kg

DRUGS (10)
  1. NOVORAPID [Concomitant]
     Active Substance: INSULIN ASPART
     Dosage: 3XPER DAG SPUITEN26- 22 -28EENHEDEN
  2. VITAMINE B12 [Concomitant]
     Active Substance: CYANOCOBALAMIN
     Dosage: UNK
  3. CIPROFLOXACIN. [Suspect]
     Active Substance: CIPROFLOXACIN
     Indication: DYSPNOEA
     Dosage: 2X2 TABLETTEN PER DAG
     Route: 048
     Dates: start: 20170628, end: 20170710
  4. LISINOPRIL. [Concomitant]
     Active Substance: LISINOPRIL
     Dosage: 1X
  5. DEXAMETASON                        /00016001/ [Suspect]
     Active Substance: DEXAMETHASONE
     Indication: PRODUCT USED FOR UNKNOWN INDICATION
     Dosage: 2X2 TABLETTEN PER DAG
     Route: 048
     Dates: start: 20170628, end: 20170710
  6. TOUJEO [Concomitant]
     Active Substance: INSULIN GLARGINE
     Dosage: 1XPER DAG68EENHEDEN TOUJEO LANGWERKENDE.
  7. PANTOPRAZOLE [Concomitant]
     Active Substance: PANTOPRAZOLE
     Dosage: 1X
  8. AZITROMYCINE [Concomitant]
     Active Substance: AZITHROMYCIN
     Dosage: 3XPER WEEK
  9. ALFUZOSIN [Concomitant]
     Active Substance: ALFUZOSIN
     Dosage: 1X
  10. ACETYL [Concomitant]
     Dosage: 1X

REACTIONS (3)
  - Dyspnoea [Recovered/Resolved with Sequelae]
  - Oedema peripheral [Recovered/Resolved with Sequelae]
  - Condition aggravated [Recovered/Resolved with Sequelae]

NARRATIVE: CASE EVENT DATE: 20170710
